FAERS Safety Report 5000362-0 (Version None)
Quarter: 2006Q2

REPORT INFORMATION
  Report Type: 
  Country: None (occurrence: None)
  Receive Date: 20060511
  Receipt Date: 20060414
  Transmission Date: 20061013
  Serious: Yes (Hospitalization)
  Sender: FDA-Public Use
  Company Number: US-MERCK-0604USA02264

PATIENT
  Age: 39 Year
  Sex: Female

DRUGS (5)
  1. ZETIA [Suspect]
     Indication: BLOOD CHOLESTEROL INCREASED
     Route: 048
     Dates: start: 20040401, end: 20060101
  2. MAVIK [Concomitant]
     Route: 065
     Dates: end: 20060101
  3. AVANDIA [Concomitant]
     Route: 065
     Dates: end: 20060101
  4. AVANDAMET [Concomitant]
     Route: 065
     Dates: end: 20060101
  5. BYETTA [Concomitant]
     Route: 065
     Dates: end: 20060101

REACTIONS (1)
  - STEVENS-JOHNSON SYNDROME [None]
